FAERS Safety Report 4343887-3 (Version None)
Quarter: 2004Q2

REPORT INFORMATION
  Report Type: 
  Country: None (occurrence: None)
  Receive Date: 20040419
  Receipt Date: 20040213
  Transmission Date: 20050107
  Serious: Yes (Life-Threatening, Hospitalization)
  Sender: FDA-Public Use
  Company Number: USA-2004-0013156

PATIENT
  Age: 60 Year
  Sex: Female

DRUGS (5)
  1. CEFDITOREN PIVOXIL (SIMILAR TO NDA 21-222) (CEFDITOREN PIVOXIL) [Suspect]
     Indication: RESPIRATORY TRACT INFECTION
     Dosage: 300 MG, DAILY, ORAL
     Route: 048
     Dates: start: 20040126, end: 20040129
  2. NIFLAN (PRANOPROFEN) [Suspect]
     Indication: PYREXIA
     Dosage: 75 MG, DAILY, ORAL
     Route: 048
     Dates: start: 20040126, end: 20040128
  3. BEGIT (DICLOFENAC SODIUM) [Suspect]
     Indication: PYREXIA
     Dosage: 25 MG, DAILY, RECTAL
     Route: 054
     Dates: start: 20040126, end: 20040128
  4. EXACIN (ISEPAMICIN SULFATE) [Concomitant]
  5. TAMIFLU [Concomitant]

REACTIONS (2)
  - INFLUENZA [None]
  - TOXIC EPIDERMAL NECROLYSIS [None]
